FAERS Safety Report 17391603 (Version 1)
Quarter: 2020Q1

REPORT INFORMATION
  Report Type: Spontaneous
  Country: US (occurrence: US)
  Receive Date: 20200207
  Receipt Date: 20200207
  Transmission Date: 20200409
  Serious: No
  Sender: FDA-Public Use
  Company Number: US-ASTRAZENECA-2020SE15840

PATIENT
  Sex: Male
  Weight: 6.1 kg

DRUGS (1)
  1. SYNAGIS [Suspect]
     Active Substance: PALIVIZUMAB
     Indication: SMALL FOR DATES BABY
     Route: 030

REACTIONS (2)
  - Hypophagia [Unknown]
  - Malaise [Unknown]
